FAERS Safety Report 5146209-3 (Version None)
Quarter: 2006Q4

REPORT INFORMATION
  Report Type: 
  Country: None (occurrence: None)
  Receive Date: 20061106
  Receipt Date: 20061106
  Transmission Date: 20070319
  Serious: Yes (Other)
  Sender: FDA-Public Use
  Company Number: None

PATIENT
  Age: 34 Year
  Sex: Female
  Weight: 56.6996 kg

DRUGS (3)
  1. ORTHO EVRA [Suspect]
     Indication: BREAST TENDERNESS
     Dosage: 1 PATCH WEEKLY
     Dates: start: 20061021, end: 20061022
  2. ORTHO EVRA [Suspect]
     Indication: HORMONE LEVEL ABNORMAL
     Dosage: 1 PATCH WEEKLY
     Dates: start: 20061021, end: 20061022
  3. ORTHO EVRA [Suspect]
     Indication: MOOD SWINGS
     Dosage: 1 PATCH WEEKLY
     Dates: start: 20061021, end: 20061022

REACTIONS (15)
  - ABDOMINAL PAIN [None]
  - BACK PAIN [None]
  - BLOOD PRESSURE DECREASED [None]
  - DIZZINESS [None]
  - FREQUENT BOWEL MOVEMENTS [None]
  - HYPERACUSIS [None]
  - LOSS OF CONSCIOUSNESS [None]
  - MALAISE [None]
  - MIGRAINE [None]
  - NAUSEA [None]
  - PAROSMIA [None]
  - PHOTOPHOBIA [None]
  - RETCHING [None]
  - SYNCOPE [None]
  - VOMITING [None]
